FAERS Safety Report 10419701 (Version 1)
Quarter: 2014Q3

REPORT INFORMATION
  Report Type: Spontaneous
  Country: US (occurrence: None)
  Receive Date: 20140827
  Receipt Date: 20140827
  Transmission Date: 20150326
  Serious: Yes (Hospitalization)
  Sender: FDA-Public Use
  Company Number: IMP_07856_2014

PATIENT
  Age: 53 Year
  Sex: Male

DRUGS (2)
  1. NAPROXEN. [Suspect]
     Active Substance: NAPROXEN
     Indication: LYME DISEASE
     Dosage: 500 MG, BID, DAILY
  2. DOXYCYCLINE. [Suspect]
     Active Substance: DOXYCYCLINE
     Indication: LYME DISEASE

REACTIONS (8)
  - Upper gastrointestinal haemorrhage [None]
  - Rectal haemorrhage [None]
  - Drug interaction [None]
  - Hypotension [None]
  - Abdominal pain upper [None]
  - Nausea [None]
  - Tachycardia [None]
  - Ulcer [None]
